FAERS Safety Report 8732284 (Version 2)
Quarter: 2012Q4

REPORT INFORMATION
  Report Type: 
  Country: US (occurrence: US)
  Receive Date: 20120820
  Receipt Date: 20121221
  Transmission Date: 20130627
  Serious: Yes (Other)
  Sender: FDA-Public Use
  Company Number: US-ASTRAZENECA-2012SE56875

PATIENT
  Age: 85 Year
  Sex: Female

DRUGS (3)
  1. NEXIUM [Suspect]
     Route: 048
  2. PRILOSEC [Suspect]
     Route: 048
  3. METOPROLOL [Concomitant]

REACTIONS (10)
  - Thrombosis [Unknown]
  - Haematemesis [Unknown]
  - Cerebrovascular accident [Unknown]
  - Coronary artery occlusion [Unknown]
  - Lymphadenopathy [Unknown]
  - Diverticulitis [Unknown]
  - Chest pain [Unknown]
  - Oesophageal disorder [Unknown]
  - Arthralgia [Unknown]
  - Drug ineffective [Unknown]
